FAERS Safety Report 9789904 (Version 1)
Quarter: 2013Q4

REPORT INFORMATION
  Report Type: Spontaneous
  Country: US (occurrence: None)
  Receive Date: 20131227
  Receipt Date: 20131227
  Transmission Date: 20140711
  Serious: Yes (Other)
  Sender: FDA-Public Use
  Company Number: 2010S1000483

PATIENT
  Age: 58 Year
  Sex: Female
  Weight: 68.95 kg

DRUGS (1)
  1. FLEET PHOSPHO-SODA [Suspect]
     Indication: COLONOSCOPY
     Route: 048
     Dates: start: 20080506, end: 20080507

REACTIONS (2)
  - Renal failure acute [None]
  - Gastrooesophageal reflux disease [None]
